FAERS Safety Report 16414597 (Version 1)
Quarter: 2019Q3

REPORT INFORMATION
  Report Type: Spontaneous
  Country: US (occurrence: US)
  Receive Date: 20190610
  Receipt Date: 20190610
  Transmission Date: 20191004
  Serious: No
  Sender: FDA-Public Use
  Company Number: None

PATIENT
  Sex: Female

DRUGS (6)
  1. LEXAPRO [Concomitant]
     Active Substance: ESCITALOPRAM OXALATE
  2. VITAMON D 3 [Concomitant]
  3. POTASSIUM [Concomitant]
     Active Substance: POTASSIUM
  4. BIOTIN [Concomitant]
     Active Substance: BIOTIN
  5. MAGNESIUM [Concomitant]
     Active Substance: MAGNESIUM
  6. HUMIRA [Suspect]
     Active Substance: ADALIMUMAB
     Indication: RHEUMATOID ARTHRITIS
     Dosage: ?          OTHER FREQUENCY:Q2W;?
     Route: 058
     Dates: start: 20190503

REACTIONS (3)
  - Arthralgia [None]
  - Finger deformity [None]
  - Peripheral swelling [None]
